FAERS Safety Report 7724447-0 (Version None)
Quarter: 2011Q3

REPORT INFORMATION
  Report Type: 
  Country: None (occurrence: None)
  Receive Date: 20110901
  Receipt Date: 20110819
  Transmission Date: 20111222
  Serious: Yes (Hospitalization)
  Sender: FDA-Public Use
  Company Number: US-GLAXOSMITHKLINE-A0863727A

PATIENT
  Age: 58 Year
  Sex: Male
  Weight: 98.6 kg

DRUGS (7)
  1. METFORMIN [Concomitant]
  2. AVANDAMET [Suspect]
     Indication: DIABETES MELLITUS
     Dosage: 2TAB TWICE PER DAY
     Route: 048
     Dates: start: 20030328, end: 20050315
  3. TENORMIN [Concomitant]
  4. PREVACID [Concomitant]
  5. AVANDIA [Suspect]
     Indication: DIABETES MELLITUS
     Dosage: 4MG PER DAY
     Route: 048
     Dates: start: 20050316, end: 20060731
  6. CRESTOR [Concomitant]
  7. DIOVAN HCT [Concomitant]

REACTIONS (4)
  - ACUTE CORONARY SYNDROME [None]
  - CORONARY ARTERY DISEASE [None]
  - MYOCARDIAL INFARCTION [None]
  - ANGINA PECTORIS [None]
